FAERS Safety Report 19857266 (Version 1)
Quarter: 2021Q3

REPORT INFORMATION
  Report Type: Report from Study
  Country: None (occurrence: IT)
  Receive Date: 20210921
  Receipt Date: 20210921
  Transmission Date: 20211014
  Serious: Yes (Hospitalization)
  Sender: FDA-Public Use
  Company Number: IT-ABBVIE-21K-083-4083274-00

PATIENT
  Age: 52 Year
  Sex: Female

DRUGS (4)
  1. LARGACTIL [Suspect]
     Active Substance: CHLORPROMAZINE
     Indication: DRUG ABUSE
     Route: 048
     Dates: start: 20180422, end: 20180422
  2. SODIUM VALPROATE/VALPROIC ACID [Suspect]
     Active Substance: VALPROATE SODIUM
     Indication: DRUG ABUSE
     Route: 048
     Dates: start: 20180422, end: 20180422
  3. QUETIAPINE. [Suspect]
     Active Substance: QUETIAPINE
     Indication: DRUG ABUSE
     Route: 048
     Dates: start: 20180422, end: 20180422
  4. VALDORM [FLURAZEPAM HYDROCHLORIDE] [Suspect]
     Active Substance: FLURAZEPAM HYDROCHLORIDE
     Indication: DRUG ABUSE
     Route: 048
     Dates: start: 20180422, end: 20180422

REACTIONS (4)
  - Pyrexia [Recovered/Resolved]
  - Drug abuse [Unknown]
  - Confusional state [Recovered/Resolved]
  - Dysarthria [Recovered/Resolved]

NARRATIVE: CASE EVENT DATE: 20180422
